FAERS Safety Report 9258270 (Version 1)
Quarter: 2013Q2

REPORT INFORMATION
  Report Type: Spontaneous
  Country: US (occurrence: None)
  Receive Date: 20130424
  Receipt Date: 20130424
  Transmission Date: 20140414
  Serious: No
  Sender: FDA-Public Use
  Company Number: None

PATIENT
  Sex: Male
  Weight: 87.54 kg

DRUGS (1)
  1. LIPITOR [Suspect]
     Indication: TYPE 2 DIABETES MELLITUS
     Dosage: 30 PILL REG.
     Dates: start: 20091112, end: 20091208

REACTIONS (2)
  - Arthralgia [None]
  - Type 2 diabetes mellitus [None]
